FAERS Safety Report 6719562-4 (Version None)
Quarter: 2010Q2

REPORT INFORMATION
  Report Type: 
  Country: None (occurrence: None)
  Receive Date: 20100510
  Receipt Date: 20100510
  Transmission Date: 20101027
  Serious: Yes (Hospitalization)
  Sender: FDA-Public Use
  Company Number: None

PATIENT
  Age: 59 Year
  Sex: Female
  Weight: 97.3 kg

DRUGS (1)
  1. LORAZEPAM [Suspect]
     Dosage: TITRATED CONTINUOUS IV DRIP
     Route: 041
     Dates: start: 20100406, end: 20100420

REACTIONS (1)
  - CHEMICAL POISONING [None]
